FAERS Safety Report 7572006-5 (Version None)
Quarter: 2011Q2

REPORT INFORMATION
  Report Type: 
  Country: None (occurrence: None)
  Receive Date: 20110620
  Receipt Date: 20110609
  Transmission Date: 20111010
  Serious: Yes (Death)
  Sender: FDA-Public Use
  Company Number: UTC-007812

PATIENT
  Age: 59 Year
  Sex: Male

DRUGS (2)
  1. REMODULIN [Suspect]
     Indication: COR PULMONALE CHRONIC
     Dosage: 12.96 UG/KG (0.009 UG/KG, 1 IN 1 MIN), INTRAVENOUS
     Route: 042
     Dates: start: 20101101
  2. DIURETICS (DIURETICS) [Concomitant]

REACTIONS (1)
  - DEATH [None]
